FAERS Safety Report 22324095 (Version 1)
Quarter: 2023Q2

REPORT INFORMATION
  Report Type: Spontaneous
  Country: US (occurrence: None)
  Receive Date: 20230512
  Receipt Date: 20230512
  Transmission Date: 20230722
  Serious: No
  Sender: FDA-Public Use
  Company Number: None

PATIENT
  Sex: 0

DRUGS (3)
  1. TRAMADOL [Suspect]
     Active Substance: TRAMADOL
  2. KESIMPTA [Suspect]
     Active Substance: OFATUMUMAB
  3. AJOVY [Suspect]
     Active Substance: FREMANEZUMAB-VFRM

REACTIONS (4)
  - Dysarthria [None]
  - Tremor [None]
  - Fall [None]
  - Unevaluable event [None]
